FAERS Safety Report 8412310-1 (Version None)
Quarter: 2012Q2

REPORT INFORMATION
  Report Type: 
  Country: None (occurrence: None)
  Receive Date: 20120605
  Receipt Date: 20120522
  Transmission Date: 20120825
  Serious: Yes (Death)
  Sender: FDA-Public Use
  Company Number: DE-CELGENEUS-062-21880-12052126

PATIENT
  Age: 60 Year
  Sex: Male
  Weight: 67 kg

DRUGS (13)
  1. JODID [Concomitant]
     Indication: HYPOTHYROIDISM
     Dosage: 200 MILLIGRAM
     Route: 048
     Dates: end: 20120514
  2. BISOPROLOL FUMARATE [Concomitant]
     Dosage: 2.5 MILLIGRAM
     Route: 048
     Dates: end: 20120514
  3. MELPHALAN HYDROCHLORIDE [Concomitant]
     Indication: MULTIPLE MYELOMA
     Route: 065
     Dates: start: 20120427, end: 20120430
  4. REVLIMID [Suspect]
     Indication: MULTIPLE MYELOMA
     Route: 048
     Dates: start: 20111114, end: 20120226
  5. ALLOPURINOL [Concomitant]
     Dosage: 150 MILLIGRAM
     Route: 048
     Dates: end: 20120514
  6. PANTOPRAZOLE [Concomitant]
     Indication: PROPHYLAXIS AGAINST GASTROINTESTINAL ULCER
     Dosage: 40 MILLIGRAM
     Route: 048
     Dates: end: 20120514
  7. POTASSIUM CHLORIDE [Concomitant]
     Route: 048
     Dates: end: 20120514
  8. ADRIAMYCIN PFS [Suspect]
     Indication: MULTIPLE MYELOMA
     Route: 065
     Dates: start: 20111114, end: 20120209
  9. DIFLUCAN [Concomitant]
     Indication: INFECTION PROPHYLAXIS
     Dosage: 200 MILLIGRAM
     Route: 048
     Dates: start: 20120512, end: 20120514
  10. DEXAMETHASONE [Suspect]
     Indication: MULTIPLE MYELOMA
     Route: 065
     Dates: start: 20111114, end: 20120227
  11. VALTREX [Concomitant]
     Indication: ANTIVIRAL PROPHYLAXIS
     Dosage: 1000 MILLIGRAM
     Route: 048
     Dates: start: 20111114, end: 20120514
  12. COTRIM DS [Concomitant]
     Indication: INFECTION PROPHYLAXIS
     Route: 048
     Dates: start: 20111114, end: 20120514
  13. CIPROFLOXACIN [Concomitant]
     Indication: INFECTION PROPHYLAXIS
     Dosage: 500 MILLIGRAM
     Route: 048
     Dates: start: 20120513, end: 20120514

REACTIONS (1)
  - DEATH [None]
